FAERS Safety Report 10045959 (Version 1)
Quarter: 2014Q1

REPORT INFORMATION
  Report Type: Spontaneous
  Country: ES (occurrence: ES)
  Receive Date: 20140330
  Receipt Date: 20140330
  Transmission Date: 20141002
  Serious: Yes (Other)
  Sender: FDA-Public Use
  Company Number: ES-TEVA-470687ISR

PATIENT
  Age: 35 Year
  Sex: Male

DRUGS (2)
  1. AMOXICILLIN [Suspect]
     Indication: ALLERGY TEST
     Dosage: 500 MG
     Route: 048
     Dates: start: 201305
  2. PHENYTOIN [Suspect]
     Indication: CONVULSION
     Dosage: INDICATION: SEIZURES BY CEREBRAL TUBERCOLOMA
     Route: 065
     Dates: start: 2002

REACTIONS (1)
  - Drug reaction with eosinophilia and systemic symptoms [Recovering/Resolving]
